FAERS Safety Report 8809477 (Version 1)
Quarter: 2012Q4

REPORT INFORMATION
  Report Type: Report from Study
  Country: AU (occurrence: AU)
  Receive Date: 20120926
  Receipt Date: 20120926
  Transmission Date: 20130627
  Serious: Yes (Other)
  Sender: FDA-Public Use
  Company Number: AU-ROCHE-1136803

PATIENT
  Age: 55 Year
  Sex: Female

DRUGS (9)
  1. ROACTEMRA [Suspect]
     Indication: RHEUMATOID ARTHRITIS
     Route: 042
     Dates: start: 20101022
  2. OROXINE [Concomitant]
     Indication: THYROIDECTOMY
     Route: 048
     Dates: start: 2004
  3. ARAVA [Concomitant]
     Indication: RHEUMATOID ARTHRITIS
     Route: 048
     Dates: start: 2008
  4. UREMIDE [Concomitant]
     Indication: FLUID RETENTION
     Route: 048
     Dates: start: 20120912
  5. HYDRENE [Concomitant]
     Indication: FLUID RETENTION
     Dosage: 25/50 mg
     Route: 065
     Dates: start: 1989
  6. VITAMIN C [Concomitant]
     Route: 065
     Dates: start: 200209
  7. MEGAFOL [Concomitant]
     Route: 065
     Dates: start: 2010
  8. LIPITOR [Concomitant]
     Indication: BLOOD CHOLESTEROL
     Route: 065
     Dates: start: 2010
  9. KRILL OIL [Concomitant]
     Indication: OSTEOARTHRITIS
     Route: 065
     Dates: start: 201206

REACTIONS (1)
  - Blood potassium decreased [Unknown]
